FAERS Safety Report 24203403 (Version 4)
Quarter: 2025Q1

REPORT INFORMATION
  Report Type: Spontaneous
  Country: US (occurrence: US)
  Receive Date: 20240813
  Receipt Date: 20250115
  Transmission Date: 20250409
  Serious: No
  Sender: BLUEPRINT MEDICINES
  Company Number: US-Blueprint Medicines Corporation-4452

PATIENT
  Age: 69 Year
  Sex: Female

DRUGS (2)
  1. AYVAKIT [Suspect]
     Active Substance: AVAPRITINIB
     Indication: Diffuse cutaneous mastocytosis
     Route: 048
     Dates: start: 20240726
  2. AYVAKIT [Suspect]
     Active Substance: AVAPRITINIB
     Route: 048
     Dates: start: 20240726

REACTIONS (16)
  - Dizziness [Unknown]
  - Fatigue [Unknown]
  - Brain fog [Unknown]
  - Nervousness [Unknown]
  - Gastrointestinal disorder [Recovering/Resolving]
  - Constipation [Unknown]
  - Decreased appetite [Recovering/Resolving]
  - Exercise tolerance decreased [Unknown]
  - Alopecia [Unknown]
  - Abdominal pain [Unknown]
  - Diarrhoea [Unknown]
  - Asthenia [Unknown]
  - Illness [Unknown]
  - Chest pain [Unknown]
  - Stress [Unknown]
  - Off label use [Unknown]

NARRATIVE: CASE EVENT DATE: 20240901
